FAERS Safety Report 4677896-1 (Version None)
Quarter: 2005Q2

REPORT INFORMATION
  Report Type: 
  Country: None (occurrence: None)
  Receive Date: 20050527
  Receipt Date: 20050527
  Transmission Date: 20051028
  Serious: Yes (Other)
  Sender: FDA-Public Use
  Company Number: None

PATIENT
  Age: 82 Year
  Sex: Female
  Weight: 91.6266 kg

DRUGS (3)
  1. BIAXIN XL [Suspect]
     Indication: UPPER RESPIRATORY TRACT INFECTION
     Dosage: 500 (2) QD
     Route: 023
  2. INAPSINE [Suspect]
     Indication: NAUSEA
     Dosage: 0.625 X 1
  3. INAPSINE [Suspect]
     Indication: VOMITING
     Dosage: 0.625 X 1

REACTIONS (3)
  - DRUG INTERACTION [None]
  - SYNCOPE [None]
  - TORSADE DE POINTES [None]
